FAERS Safety Report 25276229 (Version 1)
Quarter: 2025Q2

REPORT INFORMATION
  Report Type: Spontaneous
  Country: CN (occurrence: CN)
  Receive Date: 20250507
  Receipt Date: 20250507
  Transmission Date: 20250717
  Serious: Yes (Other)
  Sender: DR REDDYS
  Company Number: None

PATIENT
  Age: 33 Year
  Sex: Female
  Weight: 50.0 kg

DRUGS (1)
  1. OLANZAPINE [Suspect]
     Active Substance: OLANZAPINE
     Indication: Psychotic symptom
     Dosage: 5MG,BID
     Route: 048
     Dates: start: 20250225, end: 20250417

REACTIONS (1)
  - Hyperprolactinaemia [Recovering/Resolving]

NARRATIVE: CASE EVENT DATE: 20250325
